FAERS Safety Report 20711361 (Version 1)
Quarter: 2022Q2

REPORT INFORMATION
  Report Type: Spontaneous
  Country: US (occurrence: US)
  Receive Date: 20220414
  Receipt Date: 20220414
  Transmission Date: 20220720
  Serious: Yes (Hospitalization)
  Sender: FDA-Public Use
  Company Number: US-Blueprint Medicines Corporation-12

PATIENT
  Sex: Male

DRUGS (2)
  1. AYVAKIT [Suspect]
     Active Substance: AVAPRITINIB
     Indication: Malignant mast cell neoplasm
     Dosage: 300MG DAILY
     Route: 048
     Dates: start: 20220322
  2. AYVAKIT [Suspect]
     Active Substance: AVAPRITINIB

REACTIONS (2)
  - Illness [Unknown]
  - Off label use [Unknown]
